FAERS Safety Report 5502427-3 (Version None)
Quarter: 2007Q4

REPORT INFORMATION
  Report Type: 
  Country: None (occurrence: None)
  Receive Date: 20071030
  Receipt Date: 20071024
  Transmission Date: 20080405
  Serious: Yes (Other)
  Sender: FDA-Public Use
  Company Number: ES-MERCK-0710USA05317

PATIENT
  Age: 81 Year
  Sex: Female
  Weight: 72 kg

DRUGS (5)
  1. MODURETIC 5-50 [Suspect]
     Indication: HYPERTENSION
     Route: 048
     Dates: start: 20050101
  2. KETOROLAC TROMETHAMINE [Concomitant]
     Route: 065
     Dates: start: 20070404, end: 20070503
  3. SYSTANE [Suspect]
     Indication: DRY EYE
     Route: 065
     Dates: start: 20070510, end: 20070601
  4. TRANKIMAZIN [Suspect]
     Indication: ANXIETY
     Route: 048
     Dates: start: 20060801
  5. OMEPRAZOLE [Suspect]
     Indication: PROPHYLAXIS AGAINST GASTROINTESTINAL ULCER
     Route: 048
     Dates: start: 20070404

REACTIONS (1)
  - HALLUCINATION, VISUAL [None]
